FAERS Safety Report 23231695 (Version 1)
Quarter: 2023Q4

REPORT INFORMATION
  Report Type: Report from Study
  Country: PH (occurrence: PH)
  Receive Date: 20231127
  Receipt Date: 20231127
  Transmission Date: 20240110
  Serious: Yes (Life-Threatening, Other)
  Sender: FDA-Public Use
  Company Number: PH-OTSUKA-2023_030611

PATIENT
  Age: 45 Year
  Sex: Male

DRUGS (1)
  1. ARIPIPRAZOLE [Suspect]
     Active Substance: ARIPIPRAZOLE
     Indication: Product used for unknown indication
     Dosage: 1 DF, QD (1 TABLET A DAY)
     Route: 048
     Dates: start: 20231007, end: 20231022

REACTIONS (4)
  - Feeling abnormal [Unknown]
  - Psychomotor hyperactivity [Unknown]
  - Disturbance in attention [Unknown]
  - Insomnia [Unknown]

NARRATIVE: CASE EVENT DATE: 20231007
